FAERS Safety Report 16380698 (Version 1)
Quarter: 2019Q2

REPORT INFORMATION
  Report Type: Spontaneous
  Country: US (occurrence: US)
  Receive Date: 20190601
  Receipt Date: 20190601
  Transmission Date: 20190711
  Serious: No
  Sender: FDA-Public Use
  Company Number: US-TEVA-2019-US-1047862

PATIENT
  Age: 60 Year
  Sex: Male

DRUGS (1)
  1. BUPRENORPHINE TRANSDERMAL PATCH [Suspect]
     Active Substance: BUPRENORPHINE
     Indication: BACK PAIN
     Dosage: FORM STRENGTH: 20 MCG/HR
     Route: 062

REACTIONS (7)
  - Dermal absorption impaired [Unknown]
  - Product adhesion issue [Unknown]
  - Application site erythema [Unknown]
  - Drug ineffective [Unknown]
  - Product residue present [Unknown]
  - Sunburn [Unknown]
  - Application site hypersensitivity [Unknown]

NARRATIVE: CASE EVENT DATE: 20190502
